FAERS Safety Report 4644982-1 (Version None)
Quarter: 2005Q2

REPORT INFORMATION
  Report Type: 
  Country: None (occurrence: None)
  Receive Date: 20050426
  Receipt Date: 20050414
  Transmission Date: 20051028
  Serious: Yes (Other)
  Sender: FDA-Public Use
  Company Number: FR-JNJFOC-20050403404

PATIENT
  Age: 39 Year
  Sex: Female

DRUGS (1)
  1. REMICADE [Suspect]
     Indication: RHEUMATOID ARTHRITIS
     Dosage: 5 INFUSIONS ADMINISTERED @ 14-APR-2005.
     Route: 042

REACTIONS (3)
  - HYPOACUSIS [None]
  - VISUAL ACUITY REDUCED [None]
  - WEIGHT INCREASED [None]
